FAERS Safety Report 25501668 (Version 1)
Quarter: 2025Q3

REPORT INFORMATION
  Report Type: Spontaneous
  Country: US (occurrence: US)
  Receive Date: 20250701
  Receipt Date: 20250701
  Transmission Date: 20251020
  Serious: No
  Sender: JOHNSON AND JOHNSON
  Company Number: US-JNJFOC-20250634034

PATIENT
  Age: 33 Year
  Sex: Female

DRUGS (3)
  1. STELARA [Suspect]
     Active Substance: USTEKINUMAB
     Indication: Colitis ulcerative
     Dates: start: 20250528, end: 20250619
  2. STELARA [Suspect]
     Active Substance: USTEKINUMAB
  3. BENADRYL [Concomitant]
     Active Substance: DIPHENHYDRAMINE HYDROCHLORIDE
     Indication: Hypersensitivity
     Dates: start: 20250619, end: 20250619

REACTIONS (3)
  - Adverse reaction [Unknown]
  - Rash [Unknown]
  - Pruritus [Unknown]
